FAERS Safety Report 17420157 (Version 10)
Quarter: 2025Q1

REPORT INFORMATION
  Report Type: Report from Study
  Country: PT (occurrence: PT)
  Receive Date: 20200214
  Receipt Date: 20250324
  Transmission Date: 20250408
  Serious: Yes (Other)
  Sender: MYLAN
  Company Number: PT-ROCHE-2499577

PATIENT
  Sex: Male
  Weight: 93 kg

DRUGS (20)
  1. GEMCITABINE [Suspect]
     Active Substance: GEMCITABINE
     Indication: Diffuse large B-cell lymphoma
     Dates: start: 20190809, end: 20191028
  2. DOXORUBICIN [Suspect]
     Active Substance: DOXORUBICIN
     Indication: Diffuse large B-cell lymphoma
     Dates: start: 20171125, end: 20180403
  3. CYCLOPHOSPHAMIDE [Suspect]
     Active Substance: CYCLOPHOSPHAMIDE
     Indication: Diffuse large B-cell lymphoma
     Dates: start: 20171125, end: 20180403
  4. ETOPOSIDE [Suspect]
     Active Substance: ETOPOSIDE
     Indication: Diffuse large B-cell lymphoma
     Dates: start: 20190422, end: 20190624
  5. DOXORUBICIN HYDROCHLORIDE [Suspect]
     Active Substance: DOXORUBICIN HYDROCHLORIDE
     Indication: Diffuse large B-cell lymphoma
     Dates: start: 20190809, end: 20191028
  6. RITUXIMAB [Suspect]
     Active Substance: RITUXIMAB
     Indication: Diffuse large B-cell lymphoma
     Dates: start: 20171125, end: 20180403
  7. RITUXIMAB [Suspect]
     Active Substance: RITUXIMAB
     Dates: start: 20190422, end: 20190624
  8. RITUXIMAB [Suspect]
     Active Substance: RITUXIMAB
     Dates: start: 20190809, end: 20191028
  9. CARBOPLATIN [Suspect]
     Active Substance: CARBOPLATIN
     Indication: Diffuse large B-cell lymphoma
     Dates: start: 20190422, end: 20190624
  10. IFOSFAMIDE [Suspect]
     Active Substance: IFOSFAMIDE
     Indication: Diffuse large B-cell lymphoma
     Dates: start: 20190422, end: 20190624
  11. PREDNISOLONE [Suspect]
     Active Substance: PREDNISOLONE
     Indication: Diffuse large B-cell lymphoma
     Dates: start: 20171125, end: 20180403
  12. VINCRISTINE [Suspect]
     Active Substance: VINCRISTINE
     Indication: Diffuse large B-cell lymphoma
     Dates: start: 20171125, end: 20180403
  13. POLATUZUMAB VEDOTIN [Suspect]
     Active Substance: POLATUZUMAB VEDOTIN
     Indication: Diffuse large B-cell lymphoma
  14. POLATUZUMAB VEDOTIN [Suspect]
     Active Substance: POLATUZUMAB VEDOTIN
  15. POLATUZUMAB VEDOTIN [Suspect]
     Active Substance: POLATUZUMAB VEDOTIN
     Dosage: 170 MILLIGRAM, QD
     Dates: start: 20200519
  16. NAVELBINE [Suspect]
     Active Substance: VINORELBINE TARTRATE
     Indication: Diffuse large B-cell lymphoma
  17. NAVELBINE [Suspect]
     Active Substance: VINORELBINE TARTRATE
  18. NAVELBINE [Suspect]
     Active Substance: VINORELBINE TARTRATE
     Dates: start: 20190809, end: 20191028
  19. DOXORUBICIN HYDROCHLORIDE [Suspect]
     Active Substance: DOXORUBICIN HYDROCHLORIDE
     Indication: Diffuse large B-cell lymphoma
     Dates: start: 20190809, end: 20191028
  20. BENDAMUSTINE [Suspect]
     Active Substance: BENDAMUSTINE
     Indication: Diffuse large B-cell lymphoma
     Dates: start: 20171125, end: 20180403

REACTIONS (31)
  - Ill-defined disorder [Unknown]
  - Azotaemia [Recovered/Resolved]
  - Hypokalaemia [Not Recovered/Not Resolved]
  - Mass [Unknown]
  - Product leakage [Unknown]
  - Intentional product use issue [Unknown]
  - Leukopenia [Unknown]
  - Thrombocytopenia [Unknown]
  - Neutropenia [Unknown]
  - Rash maculo-papular [Unknown]
  - Renal failure [Unknown]
  - Liver disorder [Unknown]
  - Off label use [Unknown]
  - Product use in unapproved indication [Unknown]
  - Hypophosphataemia [Unknown]
  - Dyspepsia [Recovered/Resolved]
  - Leukocytosis [Unknown]
  - Blood creatinine increased [Unknown]
  - Hypomagnesaemia [Unknown]
  - Disease recurrence [Unknown]
  - Paraesthesia [Unknown]
  - Depression [Unknown]
  - Ocular hyperaemia [Unknown]
  - Transaminases increased [Unknown]
  - Anaemia [Unknown]
  - Alanine aminotransferase increased [Unknown]
  - Rash erythematous [Unknown]
  - White blood cell count decreased [Unknown]
  - Fatigue [Not Recovered/Not Resolved]
  - Diarrhoea [Unknown]
  - Aspartate aminotransferase increased [Unknown]

NARRATIVE: CASE EVENT DATE: 20190101
